FAERS Safety Report 10379116 (Version 1)
Quarter: 2014Q3

REPORT INFORMATION
  Report Type: Spontaneous
  Country: BR (occurrence: BR)
  Receive Date: 20140812
  Receipt Date: 20140812
  Transmission Date: 20150326
  Serious: Yes (Hospitalization)
  Sender: FDA-Public Use
  Company Number: BR-GLAXOSMITHKLINE-A1084610A

PATIENT
  Age: 77 Year
  Sex: Male
  Weight: 86 kg

DRUGS (5)
  1. ENALAPRIL [Concomitant]
     Active Substance: ENALAPRIL
     Indication: HYPERTENSION
     Dosage: 1TAB PER DAY
     Route: 048
     Dates: start: 2013
  2. HYDROCHLOROTHIAZIDE. [Concomitant]
     Active Substance: HYDROCHLOROTHIAZIDE
     Indication: HYPERTENSION
     Dosage: 1TAB PER DAY
     Route: 048
     Dates: start: 2013
  3. SPIRIVA [Suspect]
     Active Substance: TIOTROPIUM BROMIDE MONOHYDRATE
     Indication: ASTHMA
     Route: 048
     Dates: start: 2013
  4. SERETIDE [Suspect]
     Active Substance: FLUTICASONE FUROATE\SALMETEROL XINAFOATE
     Indication: ASTHMA
     Dosage: 1PUFF PER DAY
     Route: 065
     Dates: start: 2010
  5. GLIFAGE [Concomitant]
     Active Substance: METFORMIN HYDROCHLORIDE
     Indication: DIABETES MELLITUS
     Dosage: 2TAB PER DAY
     Route: 048
     Dates: start: 2011

REACTIONS (1)
  - Asthmatic crisis [Recovered/Resolved]

NARRATIVE: CASE EVENT DATE: 20140724
